FAERS Safety Report 25790850 (Version 1)
Quarter: 2025Q3

REPORT INFORMATION
  Report Type: Spontaneous
  Country: US (occurrence: None)
  Receive Date: 20250911
  Receipt Date: 20250911
  Transmission Date: 20251020
  Serious: Yes (Hospitalization)
  Sender: FDA-CTU
  Company Number: None

PATIENT
  Age: 74 Year
  Sex: Female
  Weight: 87.6 kg

DRUGS (3)
  1. CYCLOPHOSPHAMIDE [Suspect]
     Active Substance: CYCLOPHOSPHAMIDE
  2. DOXORUBICIN HYDROCHLORIDE [Suspect]
     Active Substance: DOXORUBICIN HYDROCHLORIDE
  3. PEMBROLIZUMAB [Suspect]
     Active Substance: PEMBROLIZUMAB

REACTIONS (9)
  - Febrile neutropenia [None]
  - Dehydration [None]
  - Asthenia [None]
  - Nausea [None]
  - Diarrhoea [None]
  - Confusional state [None]
  - Mental status changes [None]
  - Malaise [None]
  - Sepsis [None]

NARRATIVE: CASE EVENT DATE: 20250908
